FAERS Safety Report 7023086-7 (Version None)
Quarter: 2010Q3

REPORT INFORMATION
  Report Type: 
  Country: None (occurrence: None)
  Receive Date: 20100930
  Receipt Date: 20100920
  Transmission Date: 20110219
  Serious: Yes (Hospitalization)
  Sender: FDA-Public Use
  Company Number: PHHY2010AR62447

PATIENT
  Sex: Female

DRUGS (1)
  1. EXELON [Suspect]
     Indication: COGNITIVE DISORDER
     Dosage: 5 MG, UNK
     Route: 062
     Dates: start: 20100701

REACTIONS (6)
  - CARDIAC FAILURE [None]
  - COUGH [None]
  - CYANOSIS [None]
  - INCREASED BRONCHIAL SECRETION [None]
  - PYREXIA [None]
  - RESPIRATORY TRACT INFECTION [None]
